FAERS Safety Report 15630243 (Version 1)
Quarter: 2018Q4

REPORT INFORMATION
  Report Type: Spontaneous
  Country: AU (occurrence: AU)
  Receive Date: 20181117
  Receipt Date: 20181117
  Transmission Date: 20190205
  Serious: Yes (Disabling)
  Sender: FDA-Public Use
  Company Number: None

PATIENT
  Age: 32 Year
  Sex: Female
  Weight: 46 kg

DRUGS (8)
  1. ARTIGE [Concomitant]
  2. LENESET 30 ED [Concomitant]
  3. APO-PRAZOSIN [Concomitant]
  4. SLEEP ASSIST [Concomitant]
  5. APO-QUETIAPINE 25MG [Concomitant]
  6. VALIUM/DIAZEPAM [Concomitant]
  7. BELSOMRA [Suspect]
     Active Substance: SUVOREXANT
     Indication: INSOMNIA
     Dosage: ?          QUANTITY:1 TABLET(S);?
     Route: 048
     Dates: start: 20181101, end: 20181115
  8. TEVATIAPINE XR 50MG [Concomitant]

REACTIONS (7)
  - Vomiting [None]
  - Dizziness [None]
  - Drug withdrawal syndrome [None]
  - Abdominal pain upper [None]
  - Blood pressure increased [None]
  - Heart rate increased [None]
  - Loss of consciousness [None]

NARRATIVE: CASE EVENT DATE: 20181115
